FAERS Safety Report 4953718-6 (Version None)
Quarter: 2006Q1

REPORT INFORMATION
  Report Type: 
  Country: None (occurrence: None)
  Receive Date: 20060323
  Receipt Date: 20060323
  Transmission Date: 20060701
  Serious: Yes (Hospitalization)
  Sender: FDA-Public Use
  Company Number: None

PATIENT
  Age: 67 Year
  Sex: Male
  Weight: 73.3 kg

DRUGS (2)
  1. CLOFARABINE     GENZYME [Suspect]
     Indication: ACUTE MYELOID LEUKAEMIA
     Dosage: 10 MG/M2/DAY   D 1-3, 8-10   IV DRIP
     Route: 041
     Dates: start: 20060307, end: 20060317
  2. CYCLOPHOSPHAMIDE [Suspect]
     Indication: ACUTE MYELOID LEUKAEMIA
     Dosage: 400 MG/M2/DAY   D 1-3, 8-10   IV DRIP
     Route: 041
     Dates: start: 20060307, end: 20060317

REACTIONS (1)
  - BACTERAEMIA [None]
